FAERS Safety Report 8135815-X (Version None)
Quarter: 2012Q1

REPORT INFORMATION
  Report Type: 
  Country: None (occurrence: None)
  Receive Date: 20120214
  Receipt Date: 20120209
  Transmission Date: 20120608
  Serious: Yes (Death, Hospitalization)
  Sender: FDA-Public Use
  Company Number: US-GLAXOSMITHKLINE-A0913526A

PATIENT
  Age: 56 Year
  Sex: Male

DRUGS (6)
  1. BENICAR [Concomitant]
  2. CELEBREX [Concomitant]
  3. INDOMETHACIN [Concomitant]
  4. AVANDAMET [Suspect]
     Indication: DIABETES MELLITUS
     Dosage: 1TAB TWICE PER DAY
     Route: 048
     Dates: start: 20080901, end: 20100901
  5. HYDROCHLOROTHIAZIDE [Concomitant]
  6. COLCHICINE [Concomitant]

REACTIONS (2)
  - MYOCARDIAL INFARCTION [None]
  - CARDIOVASCULAR DISORDER [None]
